FAERS Safety Report 4941971-4 (Version None)
Quarter: 2006Q1

REPORT INFORMATION
  Report Type: 
  Country: None (occurrence: None)
  Receive Date: 20060313
  Receipt Date: 20051006
  Transmission Date: 20060701
  Serious: Yes (Death, Other)
  Sender: FDA-Public Use
  Company Number: US-MERCK-0510USA05536

PATIENT
  Age: 74 Year
  Sex: Female
  Weight: 51 kg

DRUGS (9)
  1. VIOXX [Suspect]
     Indication: OSTEOARTHRITIS
     Route: 048
  2. VIOXX [Suspect]
     Route: 048
  3. VIOXX [Suspect]
     Route: 048
     Dates: start: 19990101, end: 20030219
  4. DETROL [Concomitant]
     Route: 065
  5. ALLEGRA [Concomitant]
     Route: 065
  6. NASACORT [Concomitant]
     Route: 065
  7. ZOLOFT [Concomitant]
     Route: 065
  8. MYCELEX [Concomitant]
     Route: 065
  9. LOTREL [Concomitant]
     Route: 065

REACTIONS (12)
  - ARTERIOSCLEROSIS [None]
  - BREAST CANCER [None]
  - CHEST PAIN [None]
  - DYSPNOEA [None]
  - HYPERTENSION [None]
  - INJURY [None]
  - MYOCARDIAL INFARCTION [None]
  - NIGHT SWEATS [None]
  - OEDEMA [None]
  - ORAL SOFT TISSUE DISORDER [None]
  - RHINITIS ALLERGIC [None]
  - WEIGHT INCREASED [None]
